FAERS Safety Report 4713180-5 (Version None)
Quarter: 2005Q3

REPORT INFORMATION
  Report Type: 
  Country: None (occurrence: None)
  Receive Date: 20050701
  Receipt Date: 20040518
  Transmission Date: 20060218
  Serious: Yes (Hospitalization)
  Sender: FDA-Public Use
  Company Number: US-SHR-04-023688

PATIENT
  Age: 52 Year
  Sex: Female
  Weight: 78.9 kg

DRUGS (1)
  1. YASMIN [Suspect]
     Indication: MENORRHAGIA
     Dosage: 1 TAB(S), 1X/DAY , ORAL
     Route: 048
     Dates: start: 20040107

REACTIONS (3)
  - DEEP VEIN THROMBOSIS [None]
  - MALAISE [None]
  - PALPITATIONS [None]
